FAERS Safety Report 17115065 (Version 1)
Quarter: 2019Q4

REPORT INFORMATION
  Report Type: Spontaneous
  Country: US (occurrence: US)
  Receive Date: 20191205
  Receipt Date: 20191205
  Transmission Date: 20200122
  Serious: No
  Sender: FDA-Public Use
  Company Number: US-GW PHARMA-201910USGW4001

PATIENT

DRUGS (5)
  1. EPIDIOLEX [Suspect]
     Active Substance: CANNABIDIOL
     Indication: LENNOX-GASTAUT SYNDROME
     Dosage: 450 MILLIGRAM, QD (NIGHTLY)
     Route: 048
     Dates: start: 20191002
  2. DEPAKOTE [Suspect]
     Active Substance: DIVALPROEX SODIUM
     Indication: PRODUCT USED FOR UNKNOWN INDICATION
     Dosage: UNK (BEFORE STARTING EPIDIOLEX)
     Route: 065
     Dates: end: 2019
  3. ONFI [Concomitant]
     Active Substance: CLOBAZAM
     Indication: PRODUCT USED FOR UNKNOWN INDICATION
     Dosage: UNK
     Route: 065
  4. LYRICA [Concomitant]
     Active Substance: PREGABALIN
     Indication: PRODUCT USED FOR UNKNOWN INDICATION
     Dosage: UNK
     Route: 065
  5. DEPAKOTE [Suspect]
     Active Substance: DIVALPROEX SODIUM
     Dosage: UNK (BACK ON DEPAKOTE)
     Route: 065
     Dates: start: 201910

REACTIONS (4)
  - Mood swings [Unknown]
  - Irritability [Unknown]
  - Condition aggravated [Unknown]
  - Hostility [Unknown]

NARRATIVE: CASE EVENT DATE: 20191002
